FAERS Safety Report 5813254-1 (Version None)
Quarter: 2008Q3

REPORT INFORMATION
  Report Type: 
  Country: None (occurrence: None)
  Receive Date: 20080717
  Receipt Date: 20080707
  Transmission Date: 20090109
  Serious: Yes (Other)
  Sender: FDA-Public Use
  Company Number: US-BAYER-200824193NA

PATIENT
  Age: 61 Year
  Sex: Female
  Weight: 61 kg

DRUGS (7)
  1. AVELOX [Suspect]
     Indication: BRONCHITIS
     Dosage: UNIT DOSE: 400 MG
     Route: 048
  2. XANAX [Concomitant]
  3. CODEINE SUL TAB [Concomitant]
     Indication: COUGH
  4. BENAZEPRIL HYDROCHLORIDE [Concomitant]
  5. ASPIRIN [Concomitant]
  6. SIMVASTATIN [Concomitant]
  7. HYDROCHLOROTHIAZIDE [Concomitant]

REACTIONS (1)
  - CONVULSION [None]
